FAERS Safety Report 19237050 (Version 1)
Quarter: 2021Q2

REPORT INFORMATION
  Report Type: Spontaneous
  Country: US (occurrence: US)
  Receive Date: 20210508
  Receipt Date: 20210508
  Transmission Date: 20210717
  Serious: Yes (Other)
  Sender: FDA-Public Use
  Company Number: None

PATIENT
  Age: 63 Year
  Sex: Female
  Weight: 42.75 kg

DRUGS (2)
  1. NITROFURANTOIN. [Suspect]
     Active Substance: NITROFURANTOIN
     Indication: URINARY TRACT INFECTION
     Route: 048
     Dates: start: 20210504, end: 20210505
  2. IBUPROFEN. [Concomitant]
     Active Substance: IBUPROFEN
     Dates: start: 20210504, end: 20210505

REACTIONS (17)
  - Headache [None]
  - Nausea [None]
  - Dyspnoea [None]
  - Abdominal discomfort [None]
  - Chest pain [None]
  - Fatigue [None]
  - Flatulence [None]
  - Asthenia [None]
  - Chills [None]
  - Cough [None]
  - Vomiting [None]
  - Decreased appetite [None]
  - Arthralgia [None]
  - Diarrhoea [None]
  - Chromaturia [None]
  - Pyrexia [None]
  - Somnolence [None]

NARRATIVE: CASE EVENT DATE: 20210504
